FAERS Safety Report 19057967 (Version 1)
Quarter: 2021Q1

REPORT INFORMATION
  Report Type: Spontaneous
  Country: JP (occurrence: JP)
  Receive Date: 20210325
  Receipt Date: 20210325
  Transmission Date: 20210420
  Serious: Yes (Hospitalization, Other)
  Sender: FDA-Public Use
  Company Number: JP-ORGANON-2011JPN010507

PATIENT
  Age: 71 Year
  Sex: Male

DRUGS (42)
  1. REFLEX [Suspect]
     Active Substance: MIRTAZAPINE
     Indication: DEPRESSION
     Dosage: 15 MILLIGRAM
     Route: 048
     Dates: start: 20201006, end: 20201012
  2. LEMBOREXANT [Concomitant]
     Active Substance: LEMBOREXANT
     Dosage: 2.5 MG, PRN
     Route: 048
     Dates: start: 20201027
  3. POTASSIUM GLUCONATE [Concomitant]
     Active Substance: POTASSIUM GLUCONATE
     Dosage: 10 GRAM
     Route: 048
     Dates: start: 20201103, end: 20201104
  4. SYCREST [Concomitant]
     Active Substance: ASENAPINE MALEATE
     Dosage: 5 MILLIGRAM
     Route: 060
     Dates: start: 20201014
  5. LEMBOREXANT [Concomitant]
     Active Substance: LEMBOREXANT
     Dosage: 5 MG, PRN
     Route: 048
     Dates: start: 20201027
  6. MAGNESIUM OXIDE. [Concomitant]
     Active Substance: MAGNESIUM OXIDE
     Dosage: 660 MILLIGRAM
     Route: 048
     Dates: start: 20201015
  7. POTASSIUM GLUCONATE [Concomitant]
     Active Substance: POTASSIUM GLUCONATE
     Dosage: 60 GRAM
     Route: 048
     Dates: start: 20201021, end: 20201022
  8. SODIUM CARBONATE ANHYDROUS [Concomitant]
     Active Substance: SODIUM CARBONATE
     Indication: CONSTIPATION
     Dosage: UNK, PRN
     Route: 054
     Dates: start: 20201013
  9. SODIUM CHLORIDE. [Concomitant]
     Active Substance: SODIUM CHLORIDE
     Dosage: 4.5 GRAM
     Route: 048
     Dates: start: 20201103, end: 20201104
  10. SUVOREXANT. [Concomitant]
     Active Substance: SUVOREXANT
     Indication: INSOMNIA
     Dosage: 15 MG
     Route: 048
     Dates: start: 20201029, end: 20201104
  11. SYCREST [Concomitant]
     Active Substance: ASENAPINE MALEATE
     Dosage: 5 MILLIGRAM, PRN
     Route: 060
     Dates: start: 20201007
  12. LEMBOREXANT [Concomitant]
     Active Substance: LEMBOREXANT
     Dosage: 10 MG
     Route: 048
     Dates: start: 20201006, end: 20201019
  13. RAMELTEON [Concomitant]
     Active Substance: RAMELTEON
     Indication: INSOMNIA
     Dosage: 8 MG
     Route: 048
     Dates: start: 20201005, end: 20201029
  14. MAGNESIUM OXIDE. [Concomitant]
     Active Substance: MAGNESIUM OXIDE
     Dosage: 1980 MILLIGRAM
     Route: 048
     Dates: start: 20201013, end: 20201014
  15. BISOPROLOL FUMARATE. [Concomitant]
     Active Substance: BISOPROLOL FUMARATE
     Indication: SINUS TACHYCARDIA
     Dosage: 1.25 MILLIGRAM
     Route: 048
     Dates: start: 20201023, end: 20201102
  16. SYCREST [Concomitant]
     Active Substance: ASENAPINE MALEATE
     Dosage: 5 MILLIGRAM, PRN
     Route: 060
     Dates: start: 20201016, end: 20201018
  17. LEMBOREXANT [Concomitant]
     Active Substance: LEMBOREXANT
     Dosage: 2.5 MG, PRN
     Route: 048
     Dates: start: 20201029
  18. POTASSIUM GLUCONATE [Concomitant]
     Active Substance: POTASSIUM GLUCONATE
     Indication: HYPOKALAEMIA
     Dosage: 40 GRAM
     Route: 048
     Dates: start: 20201018, end: 20201020
  19. SODIUM CHLORIDE. [Concomitant]
     Active Substance: SODIUM CHLORIDE
     Indication: BLOOD SODIUM ABNORMAL
     Dosage: 3 GRAM
     Route: 048
     Dates: start: 20201023, end: 20201102
  20. GUAIAZULENE [Concomitant]
     Active Substance: GUAIAZULENE
     Dosage: UNK, ROUTE OF ADMINISTRATION: T.O.
     Dates: start: 20201005
  21. SYCREST [Concomitant]
     Active Substance: ASENAPINE MALEATE
     Indication: DELIRIUM
     Dosage: 10 MILLIGRAM
     Route: 060
     Dates: start: 20201005, end: 20201013
  22. LEMBOREXANT [Concomitant]
     Active Substance: LEMBOREXANT
     Dosage: 2.5 MG, PRN
     Route: 048
     Dates: start: 20201006
  23. MAGNESIUM OXIDE. [Concomitant]
     Active Substance: MAGNESIUM OXIDE
     Indication: CONSTIPATION
     Dosage: 660 MILLIGRAM
     Route: 048
     Dates: start: 20201012
  24. MAGNESIUM OXIDE. [Concomitant]
     Active Substance: MAGNESIUM OXIDE
     Dosage: 660 MILLIGRAM
     Route: 048
     Dates: start: 20201016
  25. POTASSIUM GLUCONATE [Concomitant]
     Active Substance: POTASSIUM GLUCONATE
     Dosage: 15 GRAM
     Route: 048
     Dates: start: 20201102
  26. INSULIN LISPRO [Concomitant]
     Active Substance: INSULIN LISPRO
     Indication: DIABETES MELLITUS
     Dosage: UNK
     Route: 058
     Dates: start: 20201021
  27. SYCREST [Concomitant]
     Active Substance: ASENAPINE MALEATE
     Dosage: 10 MILLIGRAM
     Route: 060
     Dates: start: 20201016, end: 20201019
  28. POTASSIUM GLUCONATE [Concomitant]
     Active Substance: POTASSIUM GLUCONATE
     Dosage: 22.5 GRAM
     Route: 048
     Dates: start: 20201030, end: 20201101
  29. SAXAGLIPTIN [Concomitant]
     Active Substance: SAXAGLIPTIN
     Indication: DIABETES MELLITUS
     Dosage: 5 MILLIGRAM
     Route: 048
     Dates: start: 20201020, end: 20201104
  30. REFLEX [Suspect]
     Active Substance: MIRTAZAPINE
     Dosage: 30 MILLIGRAM
     Route: 048
     Dates: start: 20201013, end: 20201101
  31. SYCREST [Concomitant]
     Active Substance: ASENAPINE MALEATE
     Dosage: 5 MILLIGRAM, PRN
     Route: 060
     Dates: start: 20201009, end: 20201012
  32. LEMBOREXANT [Concomitant]
     Active Substance: LEMBOREXANT
     Dosage: 5 MG, PRN
     Route: 048
     Dates: start: 20201028
  33. MAGNESIUM OXIDE. [Concomitant]
     Active Substance: MAGNESIUM OXIDE
     Dosage: 1980 MILLIGRAM
     Route: 048
     Dates: start: 20201017, end: 20201018
  34. BISOPROLOL [Concomitant]
     Active Substance: BISOPROLOL
     Indication: SINUS TACHYCARDIA
     Dosage: UNK
     Dates: start: 20201010, end: 20201022
  35. BISOPROLOL FUMARATE. [Concomitant]
     Active Substance: BISOPROLOL FUMARATE
     Indication: HYPERTENSION
  36. ESCITALOPRAM OXALATE. [Concomitant]
     Active Substance: ESCITALOPRAM OXALATE
     Indication: DEPRESSION
     Dosage: 10 MILLIGRAM
     Route: 048
     Dates: start: 20201102, end: 20201104
  37. LEMBOREXANT [Concomitant]
     Active Substance: LEMBOREXANT
     Indication: INSOMNIA
     Dosage: 5 MILLIGRAM
     Route: 048
     Dates: start: 20201005
  38. LEMBOREXANT [Concomitant]
     Active Substance: LEMBOREXANT
     Dosage: 10 MG
     Route: 048
     Dates: start: 20201020, end: 20201026
  39. POTASSIUM GLUCONATE [Concomitant]
     Active Substance: POTASSIUM GLUCONATE
     Dosage: 40 GRAM
     Route: 048
     Dates: start: 20201023, end: 20201025
  40. POTASSIUM GLUCONATE [Concomitant]
     Active Substance: POTASSIUM GLUCONATE
     Dosage: 30 GRAM
     Dates: start: 20201026, end: 20201029
  41. INSULIN GLARGINE [Concomitant]
     Active Substance: INSULIN GLARGINE
     Indication: DIABETES MELLITUS
     Dosage: UNK
     Route: 058
     Dates: start: 20201021
  42. SODIUM PICOSULFATE [Concomitant]
     Active Substance: SODIUM PICOSULFATE
     Indication: CONSTIPATION
     Dosage: UNK
     Route: 048
     Dates: start: 20201026

REACTIONS (1)
  - Inappropriate antidiuretic hormone secretion [Recovered/Resolved]

NARRATIVE: CASE EVENT DATE: 20201102
